FAERS Safety Report 13132012 (Version 7)
Quarter: 2018Q2

REPORT INFORMATION
  Report Type: Report from Study
  Country: US (occurrence: US)
  Receive Date: 20170119
  Receipt Date: 20180620
  Transmission Date: 20180711
  Serious: Yes (Hospitalization)
  Sender: FDA-Public Use
  Company Number: US-ACTELION-A-US2017-148533

PATIENT
  Age: 43 Year
  Sex: Female
  Weight: 68.27 kg

DRUGS (4)
  1. VELETRI [Suspect]
     Active Substance: EPOPROSTENOL
     Indication: PULMONARY ARTERIAL HYPERTENSION
     Dosage: 33 NG/KG, PER MIN
     Route: 042
     Dates: start: 20110428
  2. XARELTO [Concomitant]
     Active Substance: RIVAROXABAN
  3. VELETRI [Suspect]
     Active Substance: EPOPROSTENOL
     Dosage: 35 NG/KG, PER MIN
     Route: 042
  4. WARFARIN [Concomitant]
     Active Substance: WARFARIN

REACTIONS (11)
  - Dyspnoea [Recovered/Resolved]
  - Nausea [Unknown]
  - Pain in extremity [Unknown]
  - Catheter management [Recovered/Resolved]
  - Pneumonia [Recovering/Resolving]
  - Pancreatitis [Unknown]
  - Device breakage [Recovered/Resolved]
  - Chest pain [Recovering/Resolving]
  - Arthralgia [Unknown]
  - Vomiting [Unknown]
  - Device leakage [Recovered/Resolved]

NARRATIVE: CASE EVENT DATE: 20180503
